FAERS Safety Report 23346297 (Version 1)
Quarter: 2023Q4

REPORT INFORMATION
  Report Type: Report from Study
  Country: US (occurrence: US)
  Receive Date: 20231228
  Receipt Date: 20231228
  Transmission Date: 20240110
  Serious: Yes (Death)
  Sender: FDA-Public Use
  Company Number: US-ABBVIE-5562028

PATIENT
  Age: 78 Year
  Sex: Male

DRUGS (9)
  1. VENCLEXTA [Suspect]
     Active Substance: VENETOCLAX
     Indication: Chronic lymphocytic leukaemia
     Dosage: STRENGTH 100 MG, (400MG TOTAL) DAILY WITH DINNER
     Route: 048
  2. coenzyme Q 10 [Concomitant]
     Indication: Product used for unknown indication
     Dosage: STRENGTH 200 MG
  3. PROSCAR [Concomitant]
     Active Substance: FINASTERIDE
     Indication: Product used for unknown indication
     Dosage: STRENGTH 5 MG
  4. PROLIA [Concomitant]
     Active Substance: DENOSUMAB
     Indication: Product used for unknown indication
     Dosage: 60 MG UNDER THE SKIN EVERY 6 (SIX) MONTHS, STRENGTH 60 MG
  5. ASCORBIC ACID;CHONDROITIN;GLUCOSAMINE;MANGANESE [Concomitant]
     Indication: Product used for unknown indication
  6. FLOMAX [Concomitant]
     Active Substance: TAMSULOSIN HYDROCHLORIDE
     Indication: Product used for unknown indication
     Dosage: STRENGTH 0.4 MG, AT NIGHT
  7. VITAMIN C [Concomitant]
     Active Substance: ASCORBIC ACID
     Indication: Product used for unknown indication
     Dosage: 500 MG BY MOUTH 2 (TWO) TIMES A DAY, STRENGTH 500MG
  8. HERBALS\SAW PALMETTO [Concomitant]
     Active Substance: HERBALS\SAW PALMETTO
     Indication: Product used for unknown indication
  9. ELIQUIS [Concomitant]
     Active Substance: APIXABAN
     Indication: Product used for unknown indication
     Dosage: STRENGTH 5 MG, 5 MG TOTAL) BY MOUTH 2(TWO) TIMES A DAY

REACTIONS (1)
  - Death [Fatal]

NARRATIVE: CASE EVENT DATE: 20231014
